FAERS Safety Report 8495991-6 (Version None)
Quarter: 2012Q3

REPORT INFORMATION
  Report Type: 
  Country: None (occurrence: None)
  Receive Date: 20120709
  Receipt Date: 20120628
  Transmission Date: 20120928
  Serious: Yes (Hospitalization)
  Sender: FDA-Public Use
  Company Number: NO-ASTRAZENECA-2012SE43650

PATIENT
  Age: 24028 Day
  Sex: Male

DRUGS (12)
  1. OXAZEPAM [Concomitant]
     Indication: CORONARY ARTERY DISEASE
     Dosage: USED FOR A LONG TIME
     Route: 048
  2. BISOPROLOL FUMARATE [Concomitant]
     Indication: CORONARY ARTERY DISEASE
     Dosage: USED FOR A LONG TIME
     Route: 048
  3. SIMVASTATIN [Concomitant]
     Indication: CORONARY ARTERY DISEASE
     Dosage: USED FOR A LONG TIME
     Route: 048
  4. VENTOLIN [Concomitant]
     Indication: CHRONIC OBSTRUCTIVE PULMONARY DISEASE
     Dosage: USED FOR A LONG TIME
     Route: 055
  5. ASPIRIN [Concomitant]
     Indication: CORONARY ARTERY DISEASE
     Dosage: USED FOR A LONG TIME
     Route: 048
  6. RAMIPRIL [Concomitant]
     Indication: CORONARY ARTERY DISEASE
     Dosage: USED FOR A LONG TIME
     Route: 048
  7. ATROVENT [Concomitant]
     Indication: CHRONIC OBSTRUCTIVE PULMONARY DISEASE
     Dosage: USED FOR A LONG TIME
     Route: 055
  8. SYMBICORT [Concomitant]
     Indication: CHRONIC OBSTRUCTIVE PULMONARY DISEASE
     Dosage: USED FOR A LONG TIME
     Route: 055
  9. BUMETANIDE [Concomitant]
     Indication: CORONARY ARTERY DISEASE
     Dosage: USED FOR A LONG TIME
     Route: 048
  10. SPIRIVA [Concomitant]
     Indication: CHRONIC OBSTRUCTIVE PULMONARY DISEASE
     Dosage: USED FOR A LONG TIME
     Route: 055
  11. MONOKET OD [Concomitant]
     Indication: CORONARY ARTERY DISEASE
     Dosage: USED FOR A LONG TIME
     Route: 048
  12. BRILINTA [Suspect]
     Indication: THROMBOSIS IN DEVICE
     Route: 048
     Dates: start: 20120612, end: 20120612

REACTIONS (3)
  - DYSPNOEA [None]
  - HYPERVENTILATION [None]
  - SINUS BRADYCARDIA [None]
